FAERS Safety Report 10470913 (Version 1)
Quarter: 2014Q3

REPORT INFORMATION
  Report Type: Spontaneous
  Country: GB (occurrence: GB)
  Receive Date: 20140923
  Receipt Date: 20140923
  Transmission Date: 20150326
  Serious: Yes (Hospitalization)
  Sender: FDA-Public Use
  Company Number: PHHY2014GB122502

PATIENT
  Age: 59 Year
  Sex: Male

DRUGS (2)
  1. METFORMIN [Suspect]
     Active Substance: METFORMIN HYDROCHLORIDE
     Indication: TYPE 2 DIABETES MELLITUS
  2. SIMVASTATIN. [Concomitant]
     Active Substance: SIMVASTATIN
     Indication: HYPERCHOLESTEROLAEMIA

REACTIONS (11)
  - Nausea [Unknown]
  - Tachycardia [Unknown]
  - Hypertension [Unknown]
  - Hypothermia [Unknown]
  - Lactic acidosis [Unknown]
  - Tachypnoea [Unknown]
  - Lethargy [Unknown]
  - Confusional state [Unknown]
  - Renal failure acute [Recovering/Resolving]
  - Vomiting [Unknown]
  - Anion gap increased [Unknown]
